FAERS Safety Report 7842971-7 (Version None)
Quarter: 2011Q4

REPORT INFORMATION
  Report Type: 
  Country: None (occurrence: None)
  Receive Date: 20111025
  Receipt Date: 20111013
  Transmission Date: 20120403
  Serious: No
  Sender: FDA-Public Use
  Company Number: US-ELI_LILLY_AND_COMPANY-US201110004411

PATIENT
  Sex: Female

DRUGS (7)
  1. CYMBALTA [Suspect]
     Indication: GENERALISED ANXIETY DISORDER
     Dosage: 20 MG, QD
     Dates: start: 20090101
  2. VITAMIN D [Concomitant]
  3. CALCIUM CARBONATE [Concomitant]
  4. CLONAZEPAM [Concomitant]
  5. BIOTIN [Concomitant]
  6. ASCORBIC ACID [Concomitant]
  7. FISH OIL [Concomitant]

REACTIONS (1)
  - HEPATIC ENZYME INCREASED [None]
